FAERS Safety Report 23595459 (Version 1)
Quarter: 2024Q1

REPORT INFORMATION
  Report Type: Spontaneous
  Country: AU (occurrence: AU)
  Receive Date: 20240305
  Receipt Date: 20240305
  Transmission Date: 20240410
  Serious: Yes (Hospitalization, Other)
  Sender: FDA-Public Use
  Company Number: AU-ASTELLAS-2024US006244

PATIENT
  Age: 26 Year
  Sex: Male

DRUGS (17)
  1. TACROLIMUS [Interacting]
     Active Substance: TACROLIMUS
     Indication: Lung transplant
     Dosage: UNK UNK, UNKNOWN FREQ. (INTERMITTENTLY HELD AND CEASED ON DAY 7)
     Route: 065
  2. TACROLIMUS [Interacting]
     Active Substance: TACROLIMUS
     Dosage: 1 MG IN THE MORNING, 1.5 MG AT NIGHT, TWICE DAILY
     Route: 065
  3. ISAVUCONAZOLE [Interacting]
     Active Substance: ISAVUCONAZOLE
     Indication: Product used for unknown indication
     Route: 048
  4. ISAVUCONAZOLE [Interacting]
     Active Substance: ISAVUCONAZOLE
     Dosage: UNK UNK, UNKNOWN FREQ.
     Route: 042
  5. ISAVUCONAZOLE [Interacting]
     Active Substance: ISAVUCONAZOLE
     Dosage: UNK UNK, UNKNOWN FREQ.
     Route: 048
  6. PREDNISOLONE [Concomitant]
     Active Substance: PREDNISOLONE
     Indication: Lung transplant
     Dosage: UNK UNK, UNKNOWN FREQ.
     Route: 065
  7. PREDNISOLONE [Concomitant]
     Active Substance: PREDNISOLONE
     Route: 065
  8. PREDNISOLONE [Concomitant]
     Active Substance: PREDNISOLONE
     Dosage: 5 MG, UNKNOWN FREQ. DAY 23
     Route: 065
  9. PREDNISOLONE [Concomitant]
     Active Substance: PREDNISOLONE
     Dosage: 2.5 MG, UNKNOWN FREQ. DAY 37
     Route: 065
  10. PREDNISOLONE [Concomitant]
     Active Substance: PREDNISOLONE
     Dosage: 35 MG, UNKNOWN FREQ. DAY 84
     Route: 065
  11. PREDNISOLONE [Concomitant]
     Active Substance: PREDNISOLONE
     Dosage: WEANED TO 5 MG, UNKNOWN FREQ. BY DAY 165
     Route: 065
  12. MYCOPHENOLATE MOFETIL [Concomitant]
     Active Substance: MYCOPHENOLATE MOFETIL
     Indication: Lung transplant
     Dosage: UNK UNK, UNKNOWN FREQ.
     Route: 065
  13. URSODIOL [Concomitant]
     Active Substance: URSODIOL
     Indication: Product used for unknown indication
     Dosage: UNK UNK, UNKNOWN FREQ.
     Route: 065
  14. PANTOPRAZOLE [Concomitant]
     Active Substance: PANTOPRAZOLE
     Indication: Product used for unknown indication
     Dosage: UNK UNK, UNKNOWN FREQ.
     Route: 065
  15. VALGANCICLOVIR [Concomitant]
     Active Substance: VALGANCICLOVIR
     Indication: Product used for unknown indication
     Dosage: UNK UNK, UNKNOWN FREQ.
     Route: 065
  16. FLUCONAZOLE [Concomitant]
     Active Substance: FLUCONAZOLE
     Indication: Prophylaxis
     Dosage: UNK UNK, UNKNOWN FREQ.
     Route: 065
  17. CIPROFLOXACIN [Concomitant]
     Active Substance: CIPROFLOXACIN
     Indication: Cholangitis
     Dosage: UNK UNK, UNKNOWN FREQ.
     Route: 065

REACTIONS (4)
  - Disseminated aspergillosis [Recovered/Resolved]
  - Nocardiosis [Recovered/Resolved]
  - Drug interaction [Unknown]
  - Off label use [Unknown]
